FAERS Safety Report 6193148-5 (Version None)
Quarter: 2009Q2

REPORT INFORMATION
  Report Type: 
  Country: None (occurrence: None)
  Receive Date: 20090518
  Receipt Date: 20090508
  Transmission Date: 20091009
  Serious: Yes (Hospitalization, Congenital Anomaly)
  Sender: FDA-Public Use
  Company Number: A0680369A

PATIENT
  Sex: Male
  Weight: 3.6 kg

DRUGS (4)
  1. PAXIL CR [Suspect]
     Indication: DEPRESSION
     Dosage: 12.5MG PER DAY
     Dates: start: 20030401, end: 20040101
  2. VITAMIN AND MINERAL PRENATAL SUPPLEMENT W/ FOLIC ACID CAP [Concomitant]
  3. PHENERGAN HCL [Concomitant]
     Dates: start: 20030901
  4. HEMOCYTE [Concomitant]
     Dates: start: 20030501

REACTIONS (3)
  - CONVULSION [None]
  - DRUG EXPOSURE DURING PREGNANCY [None]
  - MULTIPLE CONGENITAL ABNORMALITIES [None]
